FAERS Safety Report 8993570 (Version 2)
Quarter: 2013Q1

REPORT INFORMATION
  Report Type: Report from Study
  Country: US (occurrence: US)
  Receive Date: 20130102
  Receipt Date: 20130109
  Transmission Date: 20140127
  Serious: Yes (Death, Hospitalization)
  Sender: FDA-Public Use
  Company Number: US-ACTELION-A-US2012-76768

PATIENT
  Age: 16 Year
  Sex: Female

DRUGS (5)
  1. TRACLEER [Suspect]
     Indication: PULMONARY ARTERIAL HYPERTENSION
     Dosage: UNK
     Route: 048
     Dates: end: 20121220
  2. FLOLAN [Concomitant]
  3. SILDENAFIL [Concomitant]
  4. MILRINONE [Concomitant]
  5. EPINEPHRINE [Concomitant]

REACTIONS (2)
  - Death [Fatal]
  - Hospitalisation [None]
